FAERS Safety Report 5991674-2 (Version None)
Quarter: 2008Q4

REPORT INFORMATION
  Report Type: 
  Country: None (occurrence: None)
  Receive Date: 20081211
  Receipt Date: 20081125
  Transmission Date: 20090506
  Serious: Yes (Death)
  Sender: FDA-Public Use
  Company Number: JP-PFIZER INC-2008062374

PATIENT

DRUGS (8)
  1. CAMPTOSAR [Suspect]
     Indication: COLON CANCER
     Dosage: 140 MG, UNK
     Route: 041
     Dates: start: 20080605, end: 20080701
  2. FLUOROURACIL [Suspect]
     Indication: COLON CANCER
     Dosage: 370 MG, UNK
     Route: 040
  3. FLUOROURACIL [Suspect]
     Dosage: 1939.7 MG/M2
  4. CALCIUM LEVOFOLINATE [Concomitant]
     Indication: COLON CANCER
     Dosage: 236 MG, UNK
     Route: 041
     Dates: start: 20080605, end: 20080701
  5. DEXAMETHASONE SODIUM PHOSPHATE [Concomitant]
     Indication: PREMEDICATION
     Dosage: 8 MG
     Route: 041
     Dates: start: 20080605, end: 20080701
  6. KYTRIL [Concomitant]
     Indication: PREMEDICATION
     Dosage: 3 MG
     Route: 041
     Dates: start: 20080605, end: 20080701
  7. ENSURE [Concomitant]
     Indication: NUTRITIONAL SUPPORT
     Dosage: 250 ML
     Route: 048
     Dates: start: 20080605, end: 20080715
  8. CRAVIT [Concomitant]
     Indication: PYREXIA
     Dosage: 100 MG
     Dates: start: 20080623, end: 20080626

REACTIONS (1)
  - HYPONATRAEMIA [None]
